FAERS Safety Report 6315932-7 (Version None)
Quarter: 2009Q3

REPORT INFORMATION
  Report Type: 
  Country: None (occurrence: None)
  Receive Date: 20090820
  Receipt Date: 20080929
  Transmission Date: 20100115
  Serious: No
  Sender: FDA-Public Use
  Company Number: US-KINGPHARMUSA00001-K200801143

PATIENT
  Sex: Female
  Weight: 68.027 kg

DRUGS (1)
  1. CYTOMEL [Suspect]
     Indication: THYROID DISORDER
     Dosage: 25 MCG, ON AND OFF
     Route: 048
     Dates: start: 20080501

REACTIONS (4)
  - BALANCE DISORDER [None]
  - DECREASED ACTIVITY [None]
  - PAIN [None]
  - TREATMENT NONCOMPLIANCE [None]
